FAERS Safety Report 7989662 (Version 3)
Quarter: 2013Q1

REPORT INFORMATION
  Report Type: Spontaneous
  Country: US (occurrence: None)
  Receive Date: 20110525
  Receipt Date: 20121109
  Transmission Date: 20140127
  Serious: Yes (Death, Other)
  Sender: FDA-Public Use
  Company Number: 2011S1000738

PATIENT
  Age: 60 Year
  Sex: Male
  Weight: 85 kg

DRUGS (5)
  1. CUBICIN [Suspect]
     Dosage: 2 MG; PO
  2. PIPERACILLIN W/TAZOBACTAM [Concomitant]
  3. GENTAMICIN [Concomitant]
  4. RIFAMPICIN [Concomitant]
  5. IMIPENEM [Concomitant]

REACTIONS (7)
  - Cardiac failure [None]
  - Body temperature increased [None]
  - Hyperventilation [None]
  - White blood cell count increased [None]
  - Lactic acidosis [None]
  - Hypotension [None]
  - Off label use [None]
